FAERS Safety Report 7365696-3 (Version None)
Quarter: 2011Q1

REPORT INFORMATION
  Report Type: 
  Country: None (occurrence: None)
  Receive Date: 20110316
  Receipt Date: 20110316
  Transmission Date: 20110831
  Serious: Yes (Hospitalization)
  Sender: FDA-Public Use
  Company Number: None

PATIENT
  Age: 56 Year
  Sex: Female
  Weight: 124.7392 kg

DRUGS (1)
  1. CYMBALTA [Suspect]
     Indication: DEPRESSION
     Dosage: 120 MG DAILY ONCE DAILY INJ
     Dates: start: 20090810, end: 20100920

REACTIONS (5)
  - SUICIDE ATTEMPT [None]
  - ASTHENIA [None]
  - MUSCULOSKELETAL STIFFNESS [None]
  - ILL-DEFINED DISORDER [None]
  - PAIN IN EXTREMITY [None]
